FAERS Safety Report 9596102 (Version 2)
Quarter: 2013Q4

REPORT INFORMATION
  Report Type: Spontaneous
  Country: US (occurrence: US)
  Receive Date: 20131004
  Receipt Date: 20131111
  Transmission Date: 20140711
  Serious: No
  Sender: FDA-Public Use
  Company Number: US-VERTEX PHARMACEUTICALS INC-2013-010027

PATIENT
  Sex: Male

DRUGS (16)
  1. INCIVEK [Suspect]
     Indication: HEPATITIS C
     Dosage: UNK
     Dates: start: 20120802, end: 20121027
  2. PEGINTERFERON [Suspect]
     Indication: HEPATITIS C
     Dosage: 180 ?G, QW
     Route: 058
     Dates: start: 20120802, end: 20130123
  3. RIBAVIRIN [Suspect]
     Indication: HEPATITIS C
     Dosage: 200 MG, QD
     Route: 048
     Dates: start: 20120802, end: 20130123
  4. CARDIZEM [Concomitant]
     Dosage: 30 MG, PRN
     Route: 048
  5. HYDROXYZINE [Concomitant]
     Dosage: 25 MG, 4 TIMES A DAY
     Route: 048
  6. LUNESTA [Concomitant]
     Dosage: 3 MG, QD
  7. OXYCODONE HCL [Concomitant]
     Dosage: 15 MG, BID
     Route: 048
  8. OXYCODONE HCL [Concomitant]
     Dosage: 15 MG, TID
     Route: 048
  9. DESVENLAFAXINE [Concomitant]
     Dosage: 50 CAP, QD
  10. PROMETHAZINE [Concomitant]
     Dosage: 25 MG, TID
     Route: 048
  11. SYNTHROID [Concomitant]
     Dosage: 137 MG, QD
  12. TOPICORT [Concomitant]
     Dosage: 0.25 %, BID
     Route: 048
  13. ZOFRAN [Concomitant]
     Dosage: 4 MG, TID
     Route: 048
  14. ALBENZA [Concomitant]
     Dosage: 200 MG, BID
  15. LEVOTHYROXINE [Concomitant]
     Dosage: 112 MG, QD
  16. OXYCODONE HCL [Concomitant]
     Dosage: 15 MG, TID
     Route: 048

REACTIONS (4)
  - Scar pain [Unknown]
  - Dermatitis [Unknown]
  - Pruritus [Unknown]
  - Skin irritation [Unknown]
